FAERS Safety Report 4338958-1 (Version None)
Quarter: 2004Q2

REPORT INFORMATION
  Report Type: 
  Country: None (occurrence: None)
  Receive Date: 20040409
  Receipt Date: 20040331
  Transmission Date: 20050107
  Serious: Yes (Hospitalization)
  Sender: FDA-Public Use
  Company Number: 2004UW06356

PATIENT
  Age: 39 Year
  Sex: Female

DRUGS (6)
  1. ELAVIL [Suspect]
     Indication: MENTAL DISORDER
     Dosage: 25 MG PO
     Route: 048
  2. CLONIDINE [Suspect]
     Indication: MENTAL DISORDER
     Dosage: 0.2 MG
  3. HALOPERIDOL [Concomitant]
  4. NEFAZODONE [Concomitant]
  5. QUETIAPINE FUMARATE [Concomitant]
  6. QUININE SULFATE [Concomitant]

REACTIONS (6)
  - APNOEA [None]
  - BRADYCARDIA [None]
  - COMA [None]
  - HYPOTHERMIA [None]
  - OVERDOSE [None]
  - RESPIRATORY DEPRESSION [None]
